FAERS Safety Report 8555613-2 (Version None)
Quarter: 2012Q3

REPORT INFORMATION
  Report Type: 
  Country: None (occurrence: None)
  Receive Date: 20120731
  Receipt Date: 20120118
  Transmission Date: 20120928
  Serious: No
  Sender: FDA-Public Use
  Company Number: US-ASTRAZENECA-2010SE42041

PATIENT
  Age: 44 Year
  Sex: Female
  Weight: 69.9 kg

DRUGS (3)
  1. ZOLOFT [Concomitant]
     Indication: MENOPAUSAL SYMPTOMS
  2. SEROQUEL XR [Suspect]
     Indication: MENOPAUSE
     Route: 048
     Dates: start: 20100827
  3. SEROQUEL XR [Suspect]
     Route: 048

REACTIONS (4)
  - DRUG DOSE OMISSION [None]
  - THERAPEUTIC RESPONSE UNEXPECTED [None]
  - HEADACHE [None]
  - NERVOUSNESS [None]
